FAERS Safety Report 10506334 (Version 2)
Quarter: 2014Q4

REPORT INFORMATION
  Report Type: Spontaneous
  Country: US (occurrence: US)
  Receive Date: 20141009
  Receipt Date: 20141028
  Transmission Date: 20150528
  Serious: Yes (Other)
  Sender: FDA-Public Use
  Company Number: US-BEH-2014045387

PATIENT
  Age: 54 Year
  Sex: Female
  Weight: 103 kg

DRUGS (18)
  1. PRIVIGEN [Suspect]
     Active Substance: HUMAN IMMUNOGLOBULIN G
     Indication: IMMUNODEFICIENCY COMMON VARIABLE
     Dosage: 40 GM VIAL; 40 GM EVERY 3-4 WEEKS SINCE 2014
     Route: 042
  2. OMEGA3 FISH OIL [Concomitant]
  3. LEVOTHYROXINE [Concomitant]
     Active Substance: LEVOTHYROXINE
  4. ZYRTEC [Concomitant]
     Active Substance: CETIRIZINE HYDROCHLORIDE
  5. GLUCOSAMINE [Concomitant]
     Active Substance: GLUCOSAMINE
  6. SULINDAC. [Concomitant]
     Active Substance: SULINDAC
  7. SUDOGEST [Concomitant]
     Active Substance: PSEUDOEPHEDRINE HYDROCHLORIDE
  8. PATANOL [Concomitant]
     Active Substance: OLOPATADINE HYDROCHLORIDE
  9. EPIPEN [Concomitant]
     Active Substance: EPINEPHRINE
  10. IMITREX [Concomitant]
     Active Substance: SUMATRIPTAN\SUMATRIPTAN SUCCINATE
  11. QNASL [Concomitant]
     Active Substance: BECLOMETHASONE DIPROPIONATE
  12. CYMBALTA [Concomitant]
     Active Substance: DULOXETINE HYDROCHLORIDE
  13. CA/ZI/MG [Concomitant]
  14. DIPHENHYDRAMINE [Concomitant]
     Active Substance: DIPHENHYDRAMINE
  15. SPIRONOLACTONE. [Concomitant]
     Active Substance: SPIRONOLACTONE
  16. VITAMIN D3 [Concomitant]
     Active Substance: CHOLECALCIFEROL
  17. SODIUM CHLORIDE. [Concomitant]
     Active Substance: SODIUM CHLORIDE
  18. LIDOCAINE PRILOCAINE [Concomitant]

REACTIONS (1)
  - Upper limb fracture [Unknown]

NARRATIVE: CASE EVENT DATE: 20140923
